FAERS Safety Report 21565505 (Version 5)
Quarter: 2022Q4

REPORT INFORMATION
  Report Type: Report from Study
  Country: JP (occurrence: None)
  Receive Date: 20221108
  Receipt Date: 20221227
  Transmission Date: 20230113
  Serious: Yes (Life-Threatening, Hospitalization)
  Sender: FDA-Public Use
  Company Number: JP-ROCHE-3207649

PATIENT
  Age: 74 Year
  Sex: Male
  Weight: 63.9 kg

DRUGS (13)
  1. PRALSETINIB [Suspect]
     Active Substance: PRALSETINIB
     Indication: Non-small cell lung cancer metastatic
     Dosage: DATE OF LAST DOSE PRIOR TO AE 01/SEP/2022
     Route: 048
     Dates: start: 20220819
  2. PRALSETINIB [Suspect]
     Active Substance: PRALSETINIB
     Dosage: DATE OF LAST DOSE PRIOR TO AE 25/OCT/2022
     Route: 048
     Dates: start: 20220907
  3. OLMESARTAN MEDOXOMIL [Concomitant]
     Active Substance: OLMESARTAN MEDOXOMIL
     Dates: start: 20220822, end: 20221026
  4. PIRENOXINE [Concomitant]
     Active Substance: PIRENOXINE
     Route: 047
     Dates: start: 2007
  5. TIQUIZIUM BROMIDE [Concomitant]
     Active Substance: TIQUIZIUM BROMIDE
     Dates: start: 2002
  6. KETOPROFEN [Concomitant]
     Active Substance: KETOPROFEN
     Dosage: TAPE
     Dates: start: 2016
  7. DEQUALINIUM CHLORIDE [Concomitant]
     Active Substance: DEQUALINIUM CHLORIDE
     Dates: start: 20220824
  8. CALONAL [Concomitant]
     Active Substance: ACETAMINOPHEN
     Dates: start: 20220831
  9. SODIUM GUALENATE MONOHYDRATE [Concomitant]
     Active Substance: SODIUM GUALENATE MONOHYDRATE
     Dates: start: 20220902
  10. FLUITRAN TABLETS [Concomitant]
     Dates: start: 20220914, end: 20221026
  11. BISOPROLOL [Concomitant]
     Active Substance: BISOPROLOL
     Dates: start: 20221017
  12. ADALAT CC [Concomitant]
     Active Substance: NIFEDIPINE
     Dates: start: 20220930, end: 20221028
  13. DEXTROMETHORPHAN HYDROBROMIDE [Concomitant]
     Active Substance: DEXTROMETHORPHAN HYDROBROMIDE
     Dates: start: 20220824

REACTIONS (2)
  - Pneumocystis jirovecii pneumonia [Recovered/Resolved]
  - Cholangitis [Recovered/Resolved]

NARRATIVE: CASE EVENT DATE: 20221023
